FAERS Safety Report 23945281 (Version 2)
Quarter: 2024Q3

REPORT INFORMATION
  Report Type: Spontaneous
  Country: US (occurrence: US)
  Receive Date: 20240606
  Receipt Date: 20240925
  Transmission Date: 20241016
  Serious: No
  Sender: SANOFI AVENTIS
  Company Number: US-SA-SAC20240531000684

PATIENT
  Age: 1 Year
  Sex: Female

DRUGS (1)
  1. DUPIXENT [Suspect]
     Active Substance: DUPILUMAB
     Indication: Dermatitis atopic
     Dosage: 200 MG, Q4W
     Route: 058

REACTIONS (11)
  - Skin haemorrhage [Unknown]
  - Skin weeping [Unknown]
  - Photosensitivity reaction [Unknown]
  - Skin fissures [Unknown]
  - Sleep disorder due to a general medical condition [Unknown]
  - Dry skin [Not Recovered/Not Resolved]
  - Pruritus [Not Recovered/Not Resolved]
  - Dermatitis atopic [Recovered/Resolved]
  - Erythema [Recovered/Resolved]
  - Rash [Recovered/Resolved]
  - Drug ineffective [Unknown]
